FAERS Safety Report 24201935 (Version 1)
Quarter: 2024Q3

REPORT INFORMATION
  Report Type: Spontaneous
  Country: US (occurrence: US)
  Receive Date: 20240812
  Receipt Date: 20240812
  Transmission Date: 20241016
  Serious: Yes (Death)
  Sender: BAUSCH AND LOMB
  Company Number: US-BAUSCH-BL-2024-012143

PATIENT
  Age: 92 Year
  Sex: Female

DRUGS (3)
  1. XIFAXAN [Suspect]
     Active Substance: RIFAXIMIN
     Indication: Clostridium difficile infection
     Route: 065
     Dates: start: 2009
  2. XIFAXAN [Suspect]
     Active Substance: RIFAXIMIN
     Indication: Product use in unapproved indication
  3. XIFAXAN [Suspect]
     Active Substance: RIFAXIMIN
     Indication: Product prescribing issue

REACTIONS (4)
  - Megacolon [Fatal]
  - Clostridium difficile infection [Fatal]
  - Product use in unapproved indication [Unknown]
  - Product prescribing issue [Unknown]

NARRATIVE: CASE EVENT DATE: 20090101
